FAERS Safety Report 10206540 (Version 4)
Quarter: 2015Q2

REPORT INFORMATION
  Report Type: Spontaneous
  Country: US (occurrence: US)
  Receive Date: 20140530
  Receipt Date: 20150515
  Transmission Date: 20150821
  Serious: No
  Sender: FDA-Public Use
  Company Number: US-GLAXOSMITHKLINE-A1027886A

PATIENT
  Sex: Female

DRUGS (10)
  1. FLOLAN [Suspect]
     Active Substance: EPOPROSTENOL SODIUM
     Indication: COR PULMONALE CHRONIC
     Dosage: DOSE 32 NG/KG/MINCONCENTRATION 45000 NG/MLPUMP RATE 65 ML/DAYVIAL STRENGTH 1.5 MG
     Route: 042
     Dates: start: 20080212
  2. FLOLAN [Suspect]
     Active Substance: EPOPROSTENOL SODIUM
     Indication: SYSTEMIC SCLEROSIS
     Dosage: UNK
     Dates: start: 20080212
  3. FLOLAN [Suspect]
     Active Substance: EPOPROSTENOL SODIUM
     Dosage: UNK
  4. FLOLAN [Suspect]
     Active Substance: EPOPROSTENOL SODIUM
     Indication: PULMONARY HYPERTENSION
     Dosage: UNK
     Dates: start: 20080212
  5. LETAIRIS [Concomitant]
     Active Substance: AMBRISENTAN
  6. FLOLAN [Suspect]
     Active Substance: EPOPROSTENOL SODIUM
     Dosage: 45NG/KG/MIN CO;CONCENTRATION: 45,000NG/ML;PUMPRATE:91ML/DAY;VIALSTRENGTH:1.5MG
     Dates: start: 20080215
  7. FLOLAN [Suspect]
     Active Substance: EPOPROSTENOL SODIUM
     Dosage: UNK
     Dates: start: 20080212
  8. FLOLAN [Suspect]
     Active Substance: EPOPROSTENOL SODIUM
     Dosage: UNK
     Dates: start: 20080212
  9. FLOLAN [Suspect]
     Active Substance: EPOPROSTENOL SODIUM
     Dosage: 45NG/KG/MIN CO;CONCENTRATION: 45,000NG/ML;PUMPRATE:91ML/DAY;VIALSTRENGTH:1.5MG
     Dates: start: 20080215
  10. FLOLAN [Suspect]
     Active Substance: EPOPROSTENOL SODIUM
     Dosage: UNK

REACTIONS (6)
  - Sinusitis [Not Recovered/Not Resolved]
  - Herpes zoster [Not Recovered/Not Resolved]
  - Emergency care examination [Unknown]
  - Catheterisation cardiac [Unknown]
  - Dry mouth [Unknown]
  - Device connection issue [Unknown]
